FAERS Safety Report 11838645 (Version 1)
Quarter: 2015Q4

REPORT INFORMATION
  Report Type: Report from Study
  Country: US (occurrence: US)
  Receive Date: 20151215
  Receipt Date: 20151215
  Transmission Date: 20160305
  Serious: Yes (Hospitalization)
  Sender: FDA-Public Use
  Company Number: US-GILEAD-2015-0188037

PATIENT
  Age: 63 Year
  Sex: Male

DRUGS (1)
  1. IDELALISIB [Suspect]
     Active Substance: IDELALISIB
     Indication: LYMPHOMA
     Dosage: 150 MG, BID
     Route: 048
     Dates: start: 20151019, end: 20151205

REACTIONS (5)
  - Epistaxis [Unknown]
  - Blood urine present [Unknown]
  - Gait disturbance [Unknown]
  - Muscular weakness [Unknown]
  - Rash [Unknown]
